FAERS Safety Report 26131896 (Version 1)
Quarter: 2025Q4

REPORT INFORMATION
  Report Type: Spontaneous
  Country: US (occurrence: US)
  Receive Date: 20251208
  Receipt Date: 20251208
  Transmission Date: 20260118
  Serious: Yes (Other)
  Sender: PFIZER
  Company Number: US-PFIZER INC-PV202500142940

PATIENT
  Sex: Female

DRUGS (1)
  1. PANTOPRAZOLE [Suspect]
     Active Substance: PANTOPRAZOLE
     Dosage: UNK
     Dates: start: 2023

REACTIONS (6)
  - Near death experience [Unknown]
  - Dizziness [Unknown]
  - Skin lesion [Unknown]
  - Ocular discomfort [Unknown]
  - Vision blurred [Unknown]
  - Condition aggravated [Unknown]
